FAERS Safety Report 7105490-1 (Version None)
Quarter: 2010Q4

REPORT INFORMATION
  Report Type: 
  Country: None (occurrence: None)
  Receive Date: 20101116
  Receipt Date: 20101105
  Transmission Date: 20110411
  Serious: Yes (Other)
  Sender: FDA-Public Use
  Company Number: JP-SANOFI-AVENTIS-2010SA067505

PATIENT
  Sex: Female

DRUGS (5)
  1. PLAVIX [Suspect]
     Route: 048
     Dates: end: 20101101
  2. ADALAT CC [Concomitant]
     Route: 048
  3. LIPITOR [Concomitant]
     Route: 048
  4. 8-HOUR BAYER [Concomitant]
     Route: 048
  5. INDERAL [Concomitant]
     Route: 065

REACTIONS (2)
  - ANAEMIA [None]
  - HAEMOGLOBIN DECREASED [None]
